FAERS Safety Report 6407380-6 (Version None)
Quarter: 2009Q4

REPORT INFORMATION
  Report Type: 
  Country: None (occurrence: None)
  Receive Date: 20091014
  Receipt Date: 20091002
  Transmission Date: 20100525
  Serious: Yes (Hospitalization, Other)
  Sender: FDA-Public Use
  Company Number: 2007-02507

PATIENT
  Age: 64 Year
  Sex: Male
  Weight: 63 kg

DRUGS (22)
  1. VELCADE [Suspect]
     Indication: MULTIPLE MYELOMA
     Dosage: 1.90 MG, INTRAVENOUS; 1.5 MG, INTRAVENOUS
     Route: 042
     Dates: start: 20070601, end: 20070820
  2. VELCADE [Suspect]
     Indication: MULTIPLE MYELOMA
     Dosage: 1.90 MG, INTRAVENOUS; 1.5 MG, INTRAVENOUS
     Route: 042
     Dates: start: 20070920, end: 20080201
  3. LASIX [Suspect]
     Indication: GENERALISED OEDEMA
     Dosage: 40.00 MG, ORAL
     Route: 048
     Dates: start: 20070605, end: 20070628
  4. DEXAMETHASONE [Concomitant]
  5. KYTRILL (GRANISETRON) [Concomitant]
  6. SODIUM BICARBONATE [Concomitant]
  7. FAMOTIDINE [Concomitant]
  8. GASMOTIN (MOSAPRIDE CITRATE) [Concomitant]
  9. BIOFERMIN (STREPTOCOCCUS FAECALIS, LACTOBACILLUS ACIDOPHILUS, BACILLUS [Concomitant]
  10. URSO 250 [Concomitant]
  11. ALENDRONATE SODIUM [Concomitant]
  12. NORVASC [Concomitant]
  13. LEVOFLOXACIN [Concomitant]
  14. DIFLUCAN [Concomitant]
  15. ALDACTONE [Concomitant]
  16. MAGNESIUM OXIDE (MAGNESIUM OXIDE) [Concomitant]
  17. ALOSENN (TARAXACUM OFFICINALE, ACHILLEA, SENNA LEAF, RUBIA ROOT TINCTU [Concomitant]
  18. METHYCOBAL (MECOBALAMIN) [Concomitant]
  19. GRAN [Concomitant]
  20. PHELLOBERIN A (CLIOQUINOL, BERBERINE HYDROCHLORIDE, CARMELLOS SODIUM) [Concomitant]
  21. ALBUMIN TANNATE (ALBUMIN TANNATE) [Concomitant]
  22. NEUTROGIN [Concomitant]

REACTIONS (14)
  - ANAEMIA [None]
  - ASCITES [None]
  - CHOLECYSTITIS CHRONIC [None]
  - FLUID RETENTION [None]
  - GENERALISED OEDEMA [None]
  - HEPATIC ENZYME INCREASED [None]
  - HYPOAESTHESIA [None]
  - INFLUENZA [None]
  - LEUKOPENIA [None]
  - OEDEMA PERIPHERAL [None]
  - PHARYNGITIS [None]
  - PLEURAL EFFUSION [None]
  - RENAL IMPAIRMENT [None]
  - THROMBOCYTOPENIA [None]
